FAERS Safety Report 10146553 (Version 1)
Quarter: 2014Q2

REPORT INFORMATION
  Report Type: Spontaneous
  Country: US (occurrence: US)
  Receive Date: 20140501
  Receipt Date: 20140501
  Transmission Date: 20141212
  Serious: Yes (Other)
  Sender: FDA-Public Use
  Company Number: US-JNJFOC-20140417259

PATIENT
  Sex: Female
  Weight: 79.38 kg

DRUGS (3)
  1. INVOKANA [Suspect]
     Indication: TYPE 2 DIABETES MELLITUS
     Route: 048
     Dates: start: 2013, end: 201402
  2. HORMONE REPLACEMENT THERAPY [Concomitant]
     Indication: MENOPAUSE
  3. JANUMET [Concomitant]
     Indication: TYPE 2 DIABETES MELLITUS

REACTIONS (2)
  - Hysterectomy [Not Recovered/Not Resolved]
  - Fungal infection [Recovered/Resolved]
